FAERS Safety Report 6261349-3 (Version None)
Quarter: 2009Q3

REPORT INFORMATION
  Report Type: 
  Country: None (occurrence: None)
  Receive Date: 20090709
  Receipt Date: 20090703
  Transmission Date: 20100115
  Serious: Yes (Life-Threatening)
  Sender: FDA-Public Use
  Company Number: GB-ALLERGAN-0909393US

PATIENT
  Age: 30 Year
  Sex: Male
  Weight: 75 kg

DRUGS (5)
  1. PREDNISOLONE ACETATE [Suspect]
     Indication: EYE LASER SURGERY
     Dosage: 1 DF, TID
     Route: 047
     Dates: start: 20090501, end: 20090502
  2. MINIMS CYCLOPENTOLATE [Suspect]
     Indication: EYE LASER SURGERY
     Dosage: 1 DF, TID
     Route: 047
     Dates: start: 20090501, end: 20090502
  3. LANTUS [Concomitant]
     Indication: DIABETES MELLITUS
     Dosage: 30 UNITS, QD
     Route: 058
  4. NOVORAPID [Concomitant]
     Indication: DIABETES MELLITUS
     Dosage: 20 UNITS, BID
     Route: 058
  5. ASCORBIC ACID [Concomitant]
     Route: 048

REACTIONS (1)
  - HYPOGLYCAEMIA [None]
